FAERS Safety Report 7099336-8 (Version None)
Quarter: 2010Q4

REPORT INFORMATION
  Report Type: 
  Country: None (occurrence: None)
  Receive Date: 20101112
  Receipt Date: 20080717
  Transmission Date: 20110411
  Serious: No
  Sender: FDA-Public Use
  Company Number: US-KINGPHARMUSA00001-K200800856

PATIENT
  Sex: Male

DRUGS (1)
  1. AVINZA [Suspect]
     Indication: HEADACHE
     Dosage: 60 MG, QD
     Route: 048

REACTIONS (2)
  - MICTURITION URGENCY [None]
  - URINARY HESITATION [None]
